FAERS Safety Report 11766849 (Version 2)
Quarter: 2016Q1

REPORT INFORMATION
  Report Type: Spontaneous
  Country: JP (occurrence: JP)
  Receive Date: 20151123
  Receipt Date: 20160217
  Transmission Date: 20160525
  Serious: Yes (Other)
  Sender: FDA-Public Use
  Company Number: JP-BAYER-2015-466234

PATIENT
  Sex: Female

DRUGS (4)
  1. MIRENA [Suspect]
     Active Substance: LEVONORGESTREL
     Indication: MENORRHAGIA
  2. MIRENA [Suspect]
     Active Substance: LEVONORGESTREL
     Indication: DYSMENORRHOEA
     Dosage: 20 MCG/24HR, CONT
     Route: 015
     Dates: start: 20151107
  3. ADEFURONIC [Concomitant]
     Active Substance: DICLOFENAC SODIUM
     Dosage: UNK
  4. SUPRECUR [Suspect]
     Active Substance: BUSERELIN
     Indication: ENDOMETRIOSIS
     Dosage: UNK

REACTIONS (4)
  - Loss of consciousness [Recovered/Resolved]
  - Procedural pain [None]
  - Presyncope [None]
  - Shock symptom [Recovered/Resolved]

NARRATIVE: CASE EVENT DATE: 20151107
